FAERS Safety Report 9175476 (Version 1)
Quarter: 2013Q1

REPORT INFORMATION
  Report Type: Spontaneous
  Country: US (occurrence: US)
  Receive Date: 20130320
  Receipt Date: 20130320
  Transmission Date: 20140127
  Serious: Yes (Other)
  Sender: FDA-Public Use
  Company Number: US-PFIZER INC-2013087803

PATIENT
  Age: 56 Year
  Sex: Male
  Weight: 111.11 kg

DRUGS (2)
  1. ZITHROMAX [Suspect]
     Indication: COUGH
     Dosage: TWO TABLETS, 1X/DAY
     Route: 048
     Dates: start: 201012, end: 201012
  2. ZITHROMAX [Suspect]
     Indication: RESPIRATORY TRACT CONGESTION
     Dosage: ONE TABLET, 1X/DAY
     Route: 048
     Dates: start: 201012, end: 201012

REACTIONS (3)
  - Arrhythmia supraventricular [Not Recovered/Not Resolved]
  - Atrial tachycardia [Not Recovered/Not Resolved]
  - Arterial occlusive disease [Unknown]
